FAERS Safety Report 7440204-7 (Version None)
Quarter: 2011Q2

REPORT INFORMATION
  Report Type: 
  Country: None (occurrence: None)
  Receive Date: 20110427
  Receipt Date: 20110420
  Transmission Date: 20111010
  Serious: Yes (Death, Other)
  Sender: FDA-Public Use
  Company Number: US-CELGENEUS-163-21880-11042759

PATIENT
  Age: 74 Year
  Sex: Male

DRUGS (11)
  1. TEMAZEPAM [Concomitant]
     Route: 065
  2. DECADRON [Concomitant]
     Route: 065
  3. VITAMIN B-12 [Concomitant]
     Route: 065
  4. MELPHALAN [Suspect]
     Indication: MULTIPLE MYELOMA
     Route: 065
  5. PREDNISONE [Concomitant]
     Indication: MULTIPLE MYELOMA
     Route: 065
  6. ACYCLOVIR [Concomitant]
     Route: 065
  7. REVLIMID [Suspect]
     Indication: MULTIPLE MYELOMA
     Dosage: 15 MILLIGRAM
     Route: 048
     Dates: start: 20090601, end: 20090801
  8. REVLIMID [Suspect]
     Dosage: 15 MILLIGRAM
     Route: 048
     Dates: start: 20100101, end: 20100801
  9. LISINOPRIL [Concomitant]
     Route: 065
  10. OMEPRAZOLE [Concomitant]
     Route: 065
  11. WARFARIN [Concomitant]
     Route: 065

REACTIONS (3)
  - DEATH [None]
  - HAEMOGLOBIN DECREASED [None]
  - PLATELET COUNT DECREASED [None]
